FAERS Safety Report 6795123-6 (Version None)
Quarter: 2010Q2

REPORT INFORMATION
  Report Type: 
  Country: None (occurrence: None)
  Receive Date: 20100625
  Receipt Date: 20100625
  Transmission Date: 20101027
  Serious: Yes (Death, Hospitalization, Other)
  Sender: FDA-Public Use
  Company Number: PHHO2009FR08729

PATIENT
  Sex: Male

DRUGS (10)
  1. AFINITOR [Suspect]
     Indication: PANCREATIC NEUROENDOCRINE TUMOUR
     Dosage: 10 MG DAILY
     Route: 048
     Dates: start: 20080428, end: 20080520
  2. AFINITOR [Suspect]
     Dosage: 10 MG DAILY
     Route: 048
     Dates: start: 20080528, end: 20090622
  3. BRICANYL [Concomitant]
     Indication: PROPHYLAXIS
  4. ATROVENT [Concomitant]
     Indication: PROPHYLAXIS
  5. LANTUS [Concomitant]
     Indication: DIABETES MELLITUS
  6. SOMATULINE [Concomitant]
  7. KALEORID [Concomitant]
     Indication: HYPOKALAEMIA
  8. AUGMENTIN '125' [Concomitant]
     Indication: SEPTIC SHOCK
  9. NEXIUM [Concomitant]
  10. TAVANIC [Concomitant]

REACTIONS (6)
  - CARDIAC FAILURE [None]
  - CONFUSIONAL STATE [None]
  - EJECTION FRACTION DECREASED [None]
  - FATIGUE [None]
  - GENERAL PHYSICAL HEALTH DETERIORATION [None]
  - MALIGNANT NEOPLASM PROGRESSION [None]
